FAERS Safety Report 5503718-2 (Version None)
Quarter: 2007Q4

REPORT INFORMATION
  Report Type: 
  Country: None (occurrence: None)
  Receive Date: 20071030
  Receipt Date: 20071030
  Transmission Date: 20080405
  Serious: No
  Sender: FDA-Public Use
  Company Number: None

PATIENT

DRUGS (2)
  1. LITTLE FEVERS 80MG/1ML LITTLE REMEDIES [Suspect]
     Dosage: BASED ON WEIGHT 4-6HOURS PO
     Route: 048
  2. ACETAMINOPHEN [Concomitant]

REACTIONS (2)
  - CIRCUMSTANCE OR INFORMATION CAPABLE OF LEADING TO MEDICATION ERROR [None]
  - MEDICATION ERROR [None]
